FAERS Safety Report 8790864 (Version 1)
Quarter: 2012Q4

REPORT INFORMATION
  Report Type: Spontaneous
  Country: US (occurrence: None)
  Receive Date: 20120913
  Receipt Date: 20120913
  Transmission Date: 20130627
  Serious: Yes (Other)
  Sender: FDA-Public Use
  Company Number: None

PATIENT
  Age: 63 Year
  Sex: Male
  Weight: 92.99 kg

DRUGS (1)
  1. BYDUREON [Suspect]
     Indication: TYPE II DIABETES MELLITUS
     Dosage: inject 2 mg under skin 1x per week sq
     Route: 058

REACTIONS (3)
  - Urticaria [None]
  - Contusion [None]
  - Nausea [None]
